FAERS Safety Report 17429079 (Version 7)
Quarter: 2020Q2

REPORT INFORMATION
  Report Type: Spontaneous
  Country: US (occurrence: US)
  Receive Date: 20200217
  Receipt Date: 20200521
  Transmission Date: 20200713
  Serious: Yes (Other)
  Sender: FDA-Public Use
  Company Number: NVSC2020US039734

PATIENT
  Sex: Female

DRUGS (3)
  1. BEOVU [Suspect]
     Active Substance: BROLUCIZUMAB-DBLL
     Dosage: UNK
     Route: 047
     Dates: start: 20191205
  2. BEOVU [Suspect]
     Active Substance: BROLUCIZUMAB-DBLL
     Indication: PRODUCT USED FOR UNKNOWN INDICATION
     Dosage: UNK
     Route: 047
     Dates: start: 20191107
  3. BEOVU [Suspect]
     Active Substance: BROLUCIZUMAB-DBLL
     Dosage: 6 MG, ONCE/SINGLE
     Route: 047
     Dates: start: 20200109

REACTIONS (10)
  - Eye pain [Recovered/Resolved]
  - Vitreous floaters [Recovered/Resolved]
  - Eye inflammation [Unknown]
  - Retinal vasculitis [Recovering/Resolving]
  - Retinal haemorrhage [Recovered/Resolved]
  - Optic nerve sheath haemorrhage [Recovered/Resolved]
  - Headache [Recovered/Resolved]
  - Vitreous haze [Recovered/Resolved]
  - Visual impairment [Recovered/Resolved]
  - Vitritis [Recovered/Resolved]
